FAERS Safety Report 4488423-6 (Version None)
Quarter: 2004Q4

REPORT INFORMATION
  Report Type: 
  Country: None (occurrence: None)
  Receive Date: 20041026
  Receipt Date: 20041013
  Transmission Date: 20050328
  Serious: Yes (Death, Hospitalization, Other)
  Sender: FDA-Public Use
  Company Number: 2004043111

PATIENT
  Age: 16 Year
  Sex: Female
  Weight: 66.2252 kg

DRUGS (2)
  1. ZOLOFT [Suspect]
     Indication: DEPRESSION
     Dates: start: 20040117
  2. QUETIAPINE FUMARATE (QUETIAPINE FUMARATE) [Suspect]
     Indication: ILL-DEFINED DISORDER

REACTIONS (22)
  - AFFECT LABILITY [None]
  - AFFECTIVE DISORDER [None]
  - ANXIETY [None]
  - COMPLETED SUICIDE [None]
  - DEPRESSION [None]
  - EDUCATIONAL PROBLEM [None]
  - FORMICATION [None]
  - HAEMORRHAGE [None]
  - HALLUCINATION, AUDITORY [None]
  - HEART RATE INCREASED [None]
  - INJURY ASPHYXIATION [None]
  - INTENTIONAL SELF-INJURY [None]
  - IRRITABILITY [None]
  - LACERATION [None]
  - OVERDOSE [None]
  - PARENT-CHILD PROBLEM [None]
  - PERSONALITY DISORDER [None]
  - PHARYNGOLARYNGEAL PAIN [None]
  - PYREXIA [None]
  - RELATIONSHIP BREAKDOWN [None]
  - SUICIDE ATTEMPT [None]
  - THINKING ABNORMAL [None]
